FAERS Safety Report 5538311-9 (Version None)
Quarter: 2007Q4

REPORT INFORMATION
  Report Type: 
  Country: None (occurrence: None)
  Receive Date: 20071205
  Receipt Date: 20071119
  Transmission Date: 20080405
  Serious: Yes (Life-Threatening, Hospitalization)
  Sender: FDA-Public Use
  Company Number: ACO_00404_2007

PATIENT
  Sex: Female

DRUGS (12)
  1. ZANAFLEX [Suspect]
     Indication: DRUG USE FOR UNKNOWN INDICATION
     Dosage: 8 MG QID ORAL
     Route: 048
     Dates: start: 20040101, end: 20070503
  2. INSULIN [Suspect]
     Indication: DRUG USE FOR UNKNOWN INDICATION
     Dosage: (PUMP), (LOW-DOSE SLIDING SCALE), (HIGH-DOSE SLIDING SCALE, PRN.)
     Dates: start: 20040101, end: 20070401
  3. INSULIN [Suspect]
     Indication: DRUG USE FOR UNKNOWN INDICATION
     Dosage: (PUMP), (LOW-DOSE SLIDING SCALE), (HIGH-DOSE SLIDING SCALE, PRN.)
     Dates: start: 20070430, end: 20070501
  4. INSULIN [Suspect]
     Indication: DRUG USE FOR UNKNOWN INDICATION
     Dosage: (PUMP), (LOW-DOSE SLIDING SCALE), (HIGH-DOSE SLIDING SCALE, PRN.)
     Dates: start: 20070501
  5. IMODIUM ADVANCED /01493801/ [Concomitant]
  6. ESTRACE [Concomitant]
  7. CYMBALTA [Concomitant]
  8. TRIAMTERENE [Concomitant]
  9. NADOLOL [Concomitant]
  10. AMITRIPTLINE HCL [Concomitant]
  11. NEURONTIN [Concomitant]
  12. MECLIZINE /00072801/ [Concomitant]

REACTIONS (62)
  - ABDOMINAL PAIN UPPER [None]
  - ABNORMAL BEHAVIOUR [None]
  - AMNESIA [None]
  - ARTHRALGIA [None]
  - ASTHENIA [None]
  - BLOOD CHLORIDE DECREASED [None]
  - BLOOD CREATININE INCREASED [None]
  - BLOOD POTASSIUM INCREASED [None]
  - BLOOD SODIUM DECREASED [None]
  - CEREBROVASCULAR ACCIDENT [None]
  - COMPLEX PARTIAL SEIZURES [None]
  - CONFUSIONAL STATE [None]
  - CONVULSION [None]
  - CRYING [None]
  - DAYDREAMING [None]
  - DECUBITUS ULCER [None]
  - DELUSION [None]
  - DIABETES MELLITUS INADEQUATE CONTROL [None]
  - DISTURBANCE IN ATTENTION [None]
  - DRUG INTERACTION [None]
  - EMOTIONAL DISTRESS [None]
  - ENCEPHALOPATHY [None]
  - FACIAL PARESIS [None]
  - FALL [None]
  - FEAR [None]
  - FEELING ABNORMAL [None]
  - FEELING OF DESPAIR [None]
  - FLASHBACK [None]
  - GLOMERULAR FILTRATION RATE DECREASED [None]
  - GRANULOCYTE COUNT INCREASED [None]
  - GRIP STRENGTH DECREASED [None]
  - HALLUCINATIONS, MIXED [None]
  - HEAD TITUBATION [None]
  - HYPERHIDROSIS [None]
  - HYPERSOMNIA [None]
  - HYPOGLYCAEMIA [None]
  - ILL-DEFINED DISORDER [None]
  - INAPPROPRIATE AFFECT [None]
  - INSOMNIA [None]
  - LYMPHOCYTE PERCENTAGE DECREASED [None]
  - MENTAL DISORDER [None]
  - MIGRAINE [None]
  - MUSCLE SPASMS [None]
  - MUSCLE TWITCHING [None]
  - MUSCULAR WEAKNESS [None]
  - NEUTROPHIL PERCENTAGE INCREASED [None]
  - OEDEMA PERIPHERAL [None]
  - OVERDOSE [None]
  - PAIN [None]
  - PAIN IN EXTREMITY [None]
  - PERSONALITY CHANGE [None]
  - PSYCHOMOTOR HYPERACTIVITY [None]
  - PYREXIA [None]
  - RED BLOOD CELL COUNT DECREASED [None]
  - SINUSITIS [None]
  - SOCIAL AVOIDANT BEHAVIOUR [None]
  - SOMNOLENCE [None]
  - SUICIDAL IDEATION [None]
  - TRANSIENT ISCHAEMIC ATTACK [None]
  - TREMOR [None]
  - VENOUS ANGIOMA OF BRAIN [None]
  - WHITE BLOOD CELL COUNT INCREASED [None]
